FAERS Safety Report 17349734 (Version 1)
Quarter: 2020Q1

REPORT INFORMATION
  Report Type: Spontaneous
  Country: US (occurrence: US)
  Receive Date: 20200129
  Receipt Date: 20200129
  Transmission Date: 20200409
  Serious: Yes (Other)
  Sender: FDA-Public Use
  Company Number: None

PATIENT
  Age: 38 Year
  Sex: Female
  Weight: 66.68 kg

DRUGS (3)
  1. CALCIUM SUPPLEMENT [Concomitant]
     Active Substance: CALCIUM
  2. NEXPLANON [Suspect]
     Active Substance: ETONOGESTREL
     Dates: start: 20170410, end: 20191008
  3. PRENATAL VITAMINS [Concomitant]
     Active Substance: VITAMINS

REACTIONS (4)
  - Complication of device removal [None]
  - Abortion spontaneous [None]
  - Thrombosis [None]
  - Subchorionic haematoma [None]
